FAERS Safety Report 10436744 (Version 4)
Quarter: 2014Q4

REPORT INFORMATION
  Report Type: Spontaneous
  Country: US (occurrence: US)
  Receive Date: 20140908
  Receipt Date: 20141125
  Transmission Date: 20150528
  Serious: Yes (Death, Hospitalization, Other)
  Sender: FDA-Public Use
  Company Number: US-MERCK-1409USA002738

PATIENT
  Sex: Male
  Weight: 83.9 kg

DRUGS (1)
  1. JANUVIA [Suspect]
     Active Substance: SITAGLIPTIN PHOSPHATE
     Indication: TYPE 2 DIABETES MELLITUS
     Dosage: 100 MG, QD
     Route: 048
     Dates: start: 20120406, end: 20121017

REACTIONS (15)
  - Abdominal distension [Unknown]
  - Gastrooesophageal reflux disease [Recovering/Resolving]
  - Tonsillectomy [Unknown]
  - Pancreatic carcinoma metastatic [Fatal]
  - Staphylococcal infection [Not Recovered/Not Resolved]
  - Bile duct stent insertion [Unknown]
  - Fluid overload [Unknown]
  - Osteoarthritis [Unknown]
  - Back pain [Unknown]
  - Benign prostatic hyperplasia [Unknown]
  - Gastrointestinal haemorrhage [Unknown]
  - Haemorrhoid operation [Unknown]
  - Oedema peripheral [Unknown]
  - Ventricular tachycardia [Unknown]
  - Hypothyroidism [Unknown]

NARRATIVE: CASE EVENT DATE: 201206
